FAERS Safety Report 15634012 (Version 1)
Quarter: 2018Q4

REPORT INFORMATION
  Report Type: Spontaneous
  Country: FR (occurrence: FR)
  Receive Date: 20181119
  Receipt Date: 20181119
  Transmission Date: 20190205
  Serious: Yes (Hospitalization)
  Sender: FDA-Public Use
  Company Number: PHHY2018FR156889

PATIENT
  Age: 69 Year
  Sex: Male
  Weight: 96 kg

DRUGS (16)
  1. AMOXICILLIN. [Suspect]
     Active Substance: AMOXICILLIN
     Indication: PROPHYLAXIS
     Dosage: UNK
     Route: 065
  2. REVLIMID [Suspect]
     Active Substance: LENALIDOMIDE
     Indication: PLASMA CELL MYELOMA
     Dosage: 25 MG, QD
     Route: 048
     Dates: start: 20161121, end: 20161205
  3. VELCADE [Concomitant]
     Active Substance: BORTEZOMIB
     Indication: PLASMA CELL MYELOMA
     Route: 065
  4. FOLIC ACID. [Concomitant]
     Active Substance: FOLIC ACID
     Indication: PRODUCT USED FOR UNKNOWN INDICATION
     Route: 065
  5. BACTRIM [Suspect]
     Active Substance: SULFAMETHOXAZOLE\TRIMETHOPRIM
     Indication: PROPHYLAXIS
     Route: 065
  6. LOVENOX [Concomitant]
     Active Substance: ENOXAPARIN SODIUM
     Indication: PROPHYLAXIS
     Route: 065
  7. TOPALGIC (SUPROFEN) [Concomitant]
     Active Substance: SUPROFEN
     Indication: PAIN
     Dosage: 50 MG, UNK
     Route: 065
  8. DEXAMETHASONE. [Suspect]
     Active Substance: DEXAMETHASONE
     Dosage: 40 MG, QW
     Route: 048
     Dates: start: 20161121, end: 20161128
  9. PREDNISONE. [Concomitant]
     Active Substance: PREDNISONE
     Indication: PLASMA CELL MYELOMA
     Route: 065
  10. MELPHALAN. [Concomitant]
     Active Substance: MELPHALAN
     Indication: PLASMA CELL MYELOMA
     Route: 065
  11. EZETIMIBE. [Concomitant]
     Active Substance: EZETIMIBE
     Indication: HYPERCHOLESTEROLAEMIA
     Dosage: 10 MG, QD
     Route: 048
  12. DARBEPOETINE ALFA [Concomitant]
     Active Substance: DARBEPOETIN ALFA
     Indication: ANAEMIA
     Dosage: 150 MCG
     Route: 058
  13. DEXAMETHASONE. [Suspect]
     Active Substance: DEXAMETHASONE
     Indication: PLASMA CELL MYELOMA
     Dosage: 40 MG, QW
     Route: 048
     Dates: start: 20161121, end: 20161128
  14. ACETYLSALICYLATE LYSINE [Concomitant]
     Active Substance: ASPIRIN DL-LYSINE
     Indication: CAROTID ARTERY STENOSIS
     Dosage: 75 MG
     Route: 048
  15. ZELITREX [Concomitant]
     Active Substance: VALACYCLOVIR HYDROCHLORIDE
     Indication: PRODUCT USED FOR UNKNOWN INDICATION
     Dosage: UNK
     Route: 065
  16. PANTOPRAZOLE [Concomitant]
     Active Substance: PANTOPRAZOLE
     Indication: GASTROOESOPHAGEAL REFLUX DISEASE
     Dosage: 40 MG
     Route: 048

REACTIONS (3)
  - Tubulointerstitial nephritis [Recovered/Resolved]
  - Drug reaction with eosinophilia and systemic symptoms [Recovered/Resolved]
  - Pyrexia [Recovered/Resolved]

NARRATIVE: CASE EVENT DATE: 20161203
